FAERS Safety Report 8983469 (Version 1)
Quarter: 2012Q4

REPORT INFORMATION
  Report Type: 
  Country: US (occurrence: US)
  Receive Date: 20121224
  Receipt Date: 20121224
  Transmission Date: 20130627
  Serious: No
  Sender: FDA-Public Use
  Company Number: US-009507513-1212USA008546

PATIENT
  Sex: Male

DRUGS (4)
  1. PEGINTRON [Suspect]
     Indication: HEPATITIS C
     Dosage: 150 Microgram, once weekly
     Dates: start: 20121031
  2. RIBASPHERE [Suspect]
  3. TELAPREVIR [Suspect]
  4. CELEXA [Concomitant]

REACTIONS (2)
  - Depression [Unknown]
  - Dry skin [Unknown]
